FAERS Safety Report 9686030 (Version 3)
Quarter: 2013Q4

REPORT INFORMATION
  Report Type: Report from Study
  Country: DE (occurrence: DE)
  Receive Date: 20131113
  Receipt Date: 20131211
  Transmission Date: 20140711
  Serious: Yes (Hospitalization, Other)
  Sender: FDA-Public Use
  Company Number: DE-ABBVIE-13P-062-1123472-00

PATIENT
  Age: 57 Year
  Sex: Male

DRUGS (22)
  1. ZEMPLAR [Suspect]
     Indication: RENAL FAILURE
     Dates: start: 20121003, end: 20121029
  2. ZEMPLAR [Suspect]
     Indication: RENAL FAILURE CHRONIC
     Dates: start: 20121029, end: 20130214
  3. ZEMPLAR [Suspect]
     Dates: start: 20130214, end: 20130325
  4. ZEMPLAR [Suspect]
     Dosage: 2X 5 UG PER WEEK AND 1X10 UG PER WEEK
     Dates: start: 20130325, end: 20130619
  5. ZEMPLAR [Suspect]
     Dates: start: 20130619, end: 20130917
  6. ZEMPLAR [Suspect]
     Dosage: 2X10 UG PER WEEK AND 1X 5 UG PER WEEK
     Dates: start: 20130917
  7. METOHEXAL [Concomitant]
     Indication: PRODUCT USED FOR UNKNOWN INDICATION
  8. PALLADON [Concomitant]
     Indication: PRODUCT USED FOR UNKNOWN INDICATION
     Route: 048
  9. MELPERONE [Concomitant]
     Indication: PRODUCT USED FOR UNKNOWN INDICATION
  10. SALBUTAMOL [Concomitant]
     Indication: PRODUCT USED FOR UNKNOWN INDICATION
  11. ALLOPURINOL [Concomitant]
     Indication: PRODUCT USED FOR UNKNOWN INDICATION
  12. PRAVIDEL [Concomitant]
     Indication: PRODUCT USED FOR UNKNOWN INDICATION
  13. MOVICOL [Concomitant]
     Indication: PRODUCT USED FOR UNKNOWN INDICATION
  14. TRIMIPRAMIN [Concomitant]
     Indication: PRODUCT USED FOR UNKNOWN INDICATION
  15. TESTOGEL [Concomitant]
     Indication: PRODUCT USED FOR UNKNOWN INDICATION
  16. FURO [Concomitant]
     Indication: PRODUCT USED FOR UNKNOWN INDICATION
     Dates: end: 20121011
  17. FURO [Concomitant]
     Dates: start: 20121012
  18. FERRLECIT [Concomitant]
     Indication: PRODUCT USED FOR UNKNOWN INDICATION
  19. LIPONIC ACID (LIPONSAURE) [Concomitant]
     Indication: PRODUCT USED FOR UNKNOWN INDICATION
  20. OMEPRAZOL [Concomitant]
     Indication: PRODUCT USED FOR UNKNOWN INDICATION
     Route: 048
  21. DREISAVIT [Concomitant]
     Indication: PRODUCT USED FOR UNKNOWN INDICATION
  22. DUOPLAVIN [Concomitant]
     Indication: PRODUCT USED FOR UNKNOWN INDICATION
     Dosage: 75MG/100MG

REACTIONS (2)
  - Shunt occlusion [Recovered/Resolved]
  - Shunt thrombosis [Unknown]
